FAERS Safety Report 18292946 (Version 4)
Quarter: 2021Q1

REPORT INFORMATION
  Report Type: Report from Study
  Country: AR (occurrence: AR)
  Receive Date: 20200922
  Receipt Date: 20210203
  Transmission Date: 20210419
  Serious: Yes (Other)
  Sender: FDA-Public Use
  Company Number: NVSC2020AR256444

PATIENT
  Age: 38 Year
  Sex: Female

DRUGS (1)
  1. COSENTYX [Suspect]
     Active Substance: SECUKINUMAB
     Indication: PSORIATIC ARTHROPATHY
     Dosage: 150 MG, QMO
     Route: 058
     Dates: start: 20200725

REACTIONS (13)
  - Ageusia [Recovering/Resolving]
  - Oropharyngeal pain [Recovering/Resolving]
  - Diarrhoea [Recovering/Resolving]
  - Joint injury [Unknown]
  - Incorrect route of product administration [Unknown]
  - Headache [Recovering/Resolving]
  - Mobility decreased [Recovering/Resolving]
  - Road traffic accident [Recovering/Resolving]
  - Anosmia [Recovering/Resolving]
  - Vomiting [Recovering/Resolving]
  - COVID-19 [Recovering/Resolving]
  - Pain [Recovering/Resolving]
  - Nausea [Recovering/Resolving]

NARRATIVE: CASE EVENT DATE: 20200908
